FAERS Safety Report 19643047 (Version 4)
Quarter: 2021Q3

REPORT INFORMATION
  Report Type: Report from Study
  Country: US (occurrence: US)
  Receive Date: 20210731
  Receipt Date: 20210928
  Transmission Date: 20211014
  Serious: No
  Sender: FDA-Public Use
  Company Number: NVSC2021US160242

PATIENT
  Sex: Female

DRUGS (1)
  1. TABRECTA [Suspect]
     Active Substance: CAPMATINIB
     Indication: PRODUCT USED FOR UNKNOWN INDICATION
     Route: 048

REACTIONS (7)
  - Pain in extremity [Unknown]
  - Urticaria [Unknown]
  - Crying [Unknown]
  - Insomnia [Unknown]
  - Cognitive disorder [Unknown]
  - Fatigue [Unknown]
  - Feeling abnormal [Unknown]
